FAERS Safety Report 9727678 (Version 1)
Quarter: 2013Q4

REPORT INFORMATION
  Report Type: Spontaneous
  Country: SG (occurrence: SG)
  Receive Date: 20131203
  Receipt Date: 20131203
  Transmission Date: 20140711
  Serious: Yes (Death, Hospitalization, Other)
  Sender: FDA-Public Use
  Company Number: SG-GILEAD-2013-0088717

PATIENT
  Sex: 0

DRUGS (1)
  1. VISTIDE [Suspect]
     Indication: ADENOVIRUS INFECTION

REACTIONS (1)
  - Drug ineffective for unapproved indication [Fatal]
